FAERS Safety Report 5520013-6 (Version None)
Quarter: 2007Q4

REPORT INFORMATION
  Report Type: 
  Country: None (occurrence: None)
  Receive Date: 20071116
  Receipt Date: 20071108
  Transmission Date: 20080405
  Serious: Yes (Other)
  Sender: FDA-Public Use
  Company Number: CA-ASTRAZENECA-2007UW26141

PATIENT
  Age: 70 Year
  Sex: Male

DRUGS (2)
  1. XYLOCAINE TOPICAL FILM [Suspect]
     Dosage: 2% JELLY
     Route: 061
  2. AMOXIL [Suspect]

REACTIONS (8)
  - BACK PAIN [None]
  - CHEST PAIN [None]
  - DYSPHAGIA [None]
  - DYSPNOEA [None]
  - OEDEMA PERIPHERAL [None]
  - RASH [None]
  - THROAT TIGHTNESS [None]
  - TONGUE DISORDER [None]
